FAERS Safety Report 4422439-0 (Version None)
Quarter: 2004Q3

REPORT INFORMATION
  Report Type: 
  Country: None (occurrence: None)
  Receive Date: 20040810
  Receipt Date: 20040802
  Transmission Date: 20050211
  Serious: Yes (Other)
  Sender: FDA-Public Use
  Company Number: PHRM2004FR02508

PATIENT
  Age: 56 Year
  Sex: Female

DRUGS (4)
  1. FEMARA [Suspect]
     Indication: BREAST CANCER
     Dosage: 2.5 MG, QD
     Route: 048
     Dates: start: 19990101, end: 20040501
  2. PROZAC [Concomitant]
  3. LEXOMIL [Concomitant]
  4. STILNOX [Concomitant]

REACTIONS (1)
  - HYPOMANIA [None]
